FAERS Safety Report 21949808 (Version 1)
Quarter: 2023Q1

REPORT INFORMATION
  Report Type: Spontaneous
  Country: US (occurrence: None)
  Receive Date: 20230202
  Receipt Date: 20230202
  Transmission Date: 20230417
  Serious: Yes (Other)
  Sender: FDA-Public Use
  Company Number: None

PATIENT
  Age: 23 Year
  Sex: Female

DRUGS (1)
  1. CARBAMAZEPINE [Suspect]
     Active Substance: CARBAMAZEPINE

REACTIONS (4)
  - Therapy cessation [None]
  - Adverse drug reaction [None]
  - Auditory disorder [None]
  - Altered pitch perception [None]

NARRATIVE: CASE EVENT DATE: 20190505
